FAERS Safety Report 10739298 (Version 2)
Quarter: 2015Q1

REPORT INFORMATION
  Report Type: Spontaneous
  Country: US (occurrence: US)
  Receive Date: 20150126
  Receipt Date: 20150128
  Transmission Date: 20150721
  Serious: No
  Sender: FDA-Public Use
  Company Number: US-009507513-1501USA002631

PATIENT
  Age: 68 Year
  Sex: Female

DRUGS (4)
  1. INTRON A [Suspect]
     Active Substance: INTERFERON ALFA-2B
     Dosage: 3 ML,  STRENGHT 18 (UNITS NOT PROVIDED)
     Route: 058
     Dates: start: 20141231
  2. INTRON A [Suspect]
     Active Substance: INTERFERON ALFA-2B
     Indication: BRAIN NEOPLASM MALIGNANT
     Dosage: 3 ML, EQUIVALENT TO A FULL 18MUI DOSE, STRENGHT 18 (UNITS NOT PROVIDED)
     Route: 058
     Dates: start: 20141229
  3. INTRON A [Suspect]
     Active Substance: INTERFERON ALFA-2B
     Dosage: 1.5 ML,  STRENGHT 18 (UNITS NOT PROVIDED)
     Route: 058
     Dates: start: 20150107
  4. INTRON A [Suspect]
     Active Substance: INTERFERON ALFA-2B
     Dosage: 2 ML,  STRENGHT 18 (UNITS NOT PROVIDED)
     Route: 058
     Dates: start: 201501

REACTIONS (10)
  - Headache [Unknown]
  - Tremor [Unknown]
  - Chills [Unknown]
  - Product quality issue [Unknown]
  - Influenza like illness [Not Recovered/Not Resolved]
  - Fatigue [Not Recovered/Not Resolved]
  - Myalgia [Unknown]
  - Nausea [Not Recovered/Not Resolved]
  - Pyrexia [Unknown]
  - Vomiting [Unknown]

NARRATIVE: CASE EVENT DATE: 20141229
